FAERS Safety Report 7204965-4 (Version None)
Quarter: 2010Q4

REPORT INFORMATION
  Report Type: 
  Country: None (occurrence: None)
  Receive Date: 20101230
  Receipt Date: 20101221
  Transmission Date: 20110411
  Serious: Yes (Other)
  Sender: FDA-Public Use
  Company Number: US-PURDUE-USA-2010-0060881

PATIENT
  Sex: Male

DRUGS (4)
  1. OXYCONTIN [Suspect]
     Indication: PAIN
     Dosage: 270 MG, DAILY
  2. OXYCONTIN [Suspect]
     Dosage: 40 MG, BID
     Dates: start: 20010101
  3. OXYCODONE HCL [Suspect]
     Indication: PAIN
  4. SUBOXONE [Concomitant]

REACTIONS (9)
  - ANXIETY [None]
  - DRUG TOLERANCE INCREASED [None]
  - FALL [None]
  - INTERVERTEBRAL DISC OPERATION [None]
  - MONOPLEGIA [None]
  - MUSCULAR WEAKNESS [None]
  - SKELETAL INJURY [None]
  - SPINAL FUSION SURGERY [None]
  - SURGERY [None]
